FAERS Safety Report 9500209 (Version 1)
Quarter: 2013Q1

REPORT INFORMATION
  Report Type: Spontaneous
  Country: US (occurrence: None)
  Receive Date: 20130129
  Receipt Date: 20130129
  Transmission Date: 20140127
  Serious: Yes (Other)
  Sender: FDA-Public Use
  Company Number: 1000038885

PATIENT
  Age: 63 Year
  Sex: Female

DRUGS (4)
  1. BYSTOLIC [Suspect]
     Indication: BLOOD PRESSURE INCREASED
     Route: 048
     Dates: start: 20120822, end: 20120822
  2. BYSTOLIC [Suspect]
     Indication: BLOOD PRESSURE INCREASED
     Dosage: 10 MG (5 MG, 2 IN 1 D), ORAL
     Route: 048
     Dates: start: 20120919
  3. LISINOPRIL (LISINOPRIL) (LISINOPRIL) [Concomitant]
  4. LIPITOR (ATORVASTATIN CALCIUM) (ATORVASTATIN CALCIUM) [Concomitant]

REACTIONS (3)
  - Hypertension [None]
  - Drug ineffective [None]
  - Headache [None]
